FAERS Safety Report 9850330 (Version 4)
Quarter: 2015Q2

REPORT INFORMATION
  Report Type: Spontaneous
  Country: US (occurrence: US)
  Receive Date: 20140128
  Receipt Date: 20150417
  Transmission Date: 20150821
  Serious: Yes (Hospitalization, Other)
  Sender: FDA-Public Use
  Company Number: US-009507513-1401USA012158

PATIENT
  Sex: Female
  Weight: 90 kg

DRUGS (1)
  1. NUVARING [Suspect]
     Active Substance: ETHINYL ESTRADIOL\ETONOGESTREL
     Dosage: UNK
     Route: 067
     Dates: start: 20120820, end: 20130106

REACTIONS (7)
  - Pulmonary embolism [Unknown]
  - Wisdom teeth removal [Unknown]
  - Pulmonary mass [Unknown]
  - Gastrooesophageal reflux disease [Unknown]
  - Breast pain [Unknown]
  - Chest discomfort [Unknown]
  - Embolism venous [Unknown]

NARRATIVE: CASE EVENT DATE: 201209
